FAERS Safety Report 16698361 (Version 4)
Quarter: 2019Q4

REPORT INFORMATION
  Report Type: Spontaneous
  Country: US (occurrence: US)
  Receive Date: 20190813
  Receipt Date: 20191203
  Transmission Date: 20200122
  Serious: Yes (Hospitalization, Other)
  Sender: FDA-Public Use
  Company Number: US-009507513-1908USA003062

PATIENT
  Age: 67 Year
  Sex: Female
  Weight: 59 kg

DRUGS (14)
  1. CALCIUM (UNSPECIFIED) [Concomitant]
     Active Substance: CALCIUM
     Dosage: UNK
     Dates: end: 201905
  2. LOTREL [Concomitant]
     Active Substance: AMLODIPINE BESYLATE\BENAZEPRIL HYDROCHLORIDE
     Dosage: UNK
  3. MYRBETRIQ [Concomitant]
     Active Substance: MIRABEGRON
     Dosage: UNK
  4. PROZAC [Concomitant]
     Active Substance: FLUOXETINE HYDROCHLORIDE
     Dosage: 40 MILLIGRAM
  5. SINEMET CR [Suspect]
     Active Substance: CARBIDOPA\LEVODOPA
     Dosage: 1 TABLET, QID
     Route: 048
     Dates: start: 2019, end: 2019
  6. AMANTADINE. [Suspect]
     Active Substance: AMANTADINE HYDROCHLORIDE
     Indication: DYSKINESIA
     Dosage: 137 MILLIGRAM, AT BED TIME PER DAY
     Route: 048
     Dates: start: 20190223, end: 20190301
  7. SINEMET CR [Suspect]
     Active Substance: CARBIDOPA\LEVODOPA
     Dosage: 1 TABLET, TID
     Route: 048
     Dates: start: 2019, end: 201906
  8. SINGULAIR [Concomitant]
     Active Substance: MONTELUKAST SODIUM
     Dosage: UNK
  9. SINEMET CR [Suspect]
     Active Substance: CARBIDOPA\LEVODOPA
     Dosage: 1 TABLET, TID
     Route: 048
     Dates: start: 201907
  10. SINEMET CR [Suspect]
     Active Substance: CARBIDOPA\LEVODOPA
     Dosage: 8 TABLETS PER DAY
     Route: 048
     Dates: end: 2019
  11. VITAMINS (UNSPECIFIED) [Concomitant]
     Active Substance: VITAMINS
     Indication: ROUTINE HEALTH MAINTENANCE
     Dosage: UNK
     Dates: end: 201905
  12. SINEMET CR [Suspect]
     Active Substance: CARBIDOPA\LEVODOPA
     Dosage: 1.5 TABLETS, QID
     Route: 048
     Dates: start: 2019, end: 201907
  13. AMANTADINE. [Suspect]
     Active Substance: AMANTADINE HYDROCHLORIDE
     Dosage: 274 MILLIGRAM, AT BED TIME PER DAY
     Route: 048
     Dates: start: 20190302
  14. BELSOMRA [Concomitant]
     Active Substance: SUVOREXANT
     Dosage: UNK

REACTIONS (16)
  - Fall [Not Recovered/Not Resolved]
  - Confusional state [Recovered/Resolved]
  - Dyskinesia [Recovering/Resolving]
  - Therapeutic product effect incomplete [Recovered/Resolved]
  - Ataxia [Unknown]
  - Agitation [Recovered/Resolved]
  - Dizziness [Not Recovered/Not Resolved]
  - Hallucination [Unknown]
  - Amnesia [Not Recovered/Not Resolved]
  - Muscular weakness [Unknown]
  - Wrong technique in product usage process [Unknown]
  - Subdural haematoma [Unknown]
  - Encephalopathy [Unknown]
  - Drug ineffective [Recovered/Resolved]
  - Impulsive behaviour [Unknown]
  - Craniocerebral injury [Unknown]

NARRATIVE: CASE EVENT DATE: 2019
